FAERS Safety Report 9530984 (Version 1)
Quarter: 2013Q3

REPORT INFORMATION
  Report Type: Spontaneous
  Country: US (occurrence: US)
  Receive Date: 20130918
  Receipt Date: 20130918
  Transmission Date: 20140515
  Serious: No
  Sender: FDA-Public Use
  Company Number: US-009507513-1309USA006220

PATIENT
  Sex: Male

DRUGS (2)
  1. AZASITE [Suspect]
     Indication: EYE DISORDER
     Dosage: STRENGTH: 0.01 ONE BOTTLE 2.5 ML,1 DROP IN EACH EYE TWICE A DAY FOR FIRST TWO DAYS
     Route: 031
     Dates: start: 20130905, end: 20130906
  2. AZASITE [Suspect]
     Dosage: ONE DROP IN EACH EYE ONCE A DAY FOR THE REST OF THE MONTH
     Route: 031
     Dates: start: 20130907, end: 20130911

REACTIONS (1)
  - Drug ineffective [Not Recovered/Not Resolved]
